FAERS Safety Report 9234328 (Version 3)
Quarter: 2013Q3

REPORT INFORMATION
  Report Type: Spontaneous
  Country: US (occurrence: US)
  Receive Date: 20130416
  Receipt Date: 20130716
  Transmission Date: 20140515
  Serious: Yes (Hospitalization)
  Sender: FDA-Public Use
  Company Number: US-CELGENEUS-163-20785-13041292

PATIENT
  Sex: Male

DRUGS (3)
  1. THALOMID [Suspect]
     Indication: APHTHOUS STOMATITIS
     Dosage: 100 MILLIGRAM
     Route: 048
     Dates: start: 200811, end: 2009
  2. THALOMID [Suspect]
     Dosage: 100 - 200 - 100MG
     Route: 048
     Dates: start: 200906, end: 2010
  3. THALOMID [Suspect]
     Dosage: 50 MILLIGRAM
     Route: 048
     Dates: start: 201002

REACTIONS (3)
  - Neurological complication associated with device [Unknown]
  - Ataxia [Unknown]
  - Pain [Recovered/Resolved]
